FAERS Safety Report 23560348 (Version 3)
Quarter: 2025Q2

REPORT INFORMATION
  Report Type: Spontaneous
  Country: US (occurrence: US)
  Receive Date: 20240223
  Receipt Date: 20250403
  Transmission Date: 20250717
  Serious: No
  Sender: PFIZER
  Company Number: US-PFIZER INC-PV202400025203

PATIENT
  Age: 52 Year
  Sex: Female
  Weight: 82 kg

DRUGS (3)
  1. PAXLOVID [Suspect]
     Active Substance: NIRMATRELVIR\RITONAVIR
     Indication: COVID-19 treatment
     Dosage: [NIRMATRELVIR 300 MG]/[RITONAVIR 100 MG]; 2X/DAY
     Dates: start: 20240221
  2. BENZONATATE [Concomitant]
     Active Substance: BENZONATATE
     Dates: start: 20240221
  3. PROMETHAZINE DM [Concomitant]
     Active Substance: DEXTROMETHORPHAN HYDROBROMIDE\PROMETHAZINE HYDROCHLORIDE
     Dates: start: 20240221

REACTIONS (2)
  - Illness [Unknown]
  - Inappropriate schedule of product administration [Unknown]
